FAERS Safety Report 17737197 (Version 1)
Quarter: 2020Q2

REPORT INFORMATION
  Report Type: Report from Study
  Country: ES (occurrence: ES)
  Receive Date: 20200502
  Receipt Date: 20200502
  Transmission Date: 20200714
  Serious: Yes (Hospitalization)
  Sender: FDA-Public Use
  Company Number: ES-TEVA-2020-ES-1228438

PATIENT
  Age: 84 Year
  Sex: Female

DRUGS (5)
  1. SINTROM [Concomitant]
     Active Substance: ACENOCOUMAROL
     Indication: ATRIAL FIBRILLATION
     Route: 048
     Dates: start: 201706
  2. BISOPROLOL (2328A) [Suspect]
     Active Substance: BISOPROLOL
     Indication: ATRIAL FIBRILLATION
     Dosage: 5 MG
     Route: 048
     Dates: start: 201706, end: 20170627
  3. CARBAMAZEPINA (561A) [Concomitant]
     Active Substance: CARBAMAZEPINE
     Indication: NEURALGIA
     Dosage: 600 MG
     Route: 048
     Dates: start: 20170523
  4. EUTIROX 50 MICROGRAMOS COMPRIMIDOS , 100 COMPRIMIDOS [Concomitant]
     Active Substance: LEVOTHYROXINE SODIUM
     Indication: HYPOTHYROIDISM
     Dosage: 50 MICROGRAM
     Route: 048
     Dates: start: 201501
  5. KEPPRA 100 MG/ML SOLUCION ORAL, 1 FRASCO DE 150 ML CON JERINGA ORAL DE [Concomitant]
     Indication: EPILEPSY
     Dosage: 1.5 GM
     Dates: start: 201508

REACTIONS (2)
  - Atrioventricular block [Recovered/Resolved]
  - Syncope [Recovered/Resolved]

NARRATIVE: CASE EVENT DATE: 20170625
